FAERS Safety Report 24850663 (Version 2)
Quarter: 2025Q1

REPORT INFORMATION
  Report Type: Spontaneous
  Country: US (occurrence: US)
  Receive Date: 20250116
  Receipt Date: 20250317
  Transmission Date: 20250409
  Serious: Yes (Other)
  Sender: JOHNSON AND JOHNSON
  Company Number: US-JNJFOC-20241218101

PATIENT
  Age: 74 Year
  Sex: Male

DRUGS (1)
  1. TALVEY [Suspect]
     Active Substance: TALQUETAMAB-TGVS
     Indication: Plasma cell myeloma
     Route: 065
     Dates: start: 202401

REACTIONS (4)
  - Stem cell transplant [Unknown]
  - Alopecia [Unknown]
  - Ageusia [Unknown]
  - Onychomadesis [Unknown]
